FAERS Safety Report 5069743-3 (Version None)
Quarter: 2006Q3

REPORT INFORMATION
  Report Type: 
  Country: None (occurrence: None)
  Receive Date: 20060803
  Receipt Date: 20060725
  Transmission Date: 20061208
  Serious: Yes (Disabling)
  Sender: FDA-Public Use
  Company Number: US-MERCK-0607USA05023

PATIENT
  Age: 53 Year
  Sex: Female

DRUGS (5)
  1. FOSAMAX PLUS D [Suspect]
     Indication: OSTEOPOROSIS
     Route: 048
     Dates: start: 20060101
  2. CELEXA [Concomitant]
     Route: 065
  3. KLONOPIN [Concomitant]
     Route: 065
  4. FOSAMAX [Suspect]
     Indication: OSTEOPOROSIS
     Route: 048
     Dates: start: 19960101
  5. FOSAMAX [Suspect]
     Route: 048
     Dates: end: 20060101

REACTIONS (3)
  - IMPAIRED HEALING [None]
  - INFECTION [None]
  - JAW DISORDER [None]
